FAERS Safety Report 20080667 (Version 1)
Quarter: 2021Q4

REPORT INFORMATION
  Report Type: Spontaneous
  Country: US (occurrence: US)
  Receive Date: 20211117
  Receipt Date: 20211117
  Transmission Date: 20220303
  Serious: Yes (Hospitalization)
  Sender: FDA-Public Use
  Company Number: US-MYLANLABS-2021M1084768

PATIENT
  Age: 72 Year
  Sex: Female

DRUGS (2)
  1. TENOFOVIR DISOPROXIL [Suspect]
     Active Substance: TENOFOVIR DISOPROXIL
     Indication: Chronic hepatitis B
     Dosage: STARTED 5 YEARS PRIOR
     Route: 065
  2. IBANDRONATE SODIUM [Suspect]
     Active Substance: IBANDRONATE SODIUM
     Indication: Osteoporosis
     Dosage: UNK
     Route: 065

REACTIONS (5)
  - Fanconi syndrome [Recovering/Resolving]
  - Hypophosphataemic osteomalacia [Recovering/Resolving]
  - Hypophosphataemia [Recovering/Resolving]
  - Femur fracture [Unknown]
  - Spinal fracture [Unknown]
